FAERS Safety Report 21783912 (Version 1)
Quarter: 2022Q4

REPORT INFORMATION
  Report Type: Spontaneous
  Country: CO (occurrence: CO)
  Receive Date: 20221227
  Receipt Date: 20221227
  Transmission Date: 20230113
  Serious: Yes (Other)
  Sender: FDA-Public Use
  Company Number: CO-MYLANLABS-2022M1145475

PATIENT
  Age: 64 Year
  Sex: Female

DRUGS (6)
  1. ZOLEDRONIC ACID [Suspect]
     Active Substance: ZOLEDRONIC ACID
     Indication: Invasive lobular breast carcinoma
     Dosage: UNK
     Route: 065
  2. ZOLEDRONIC ACID [Suspect]
     Active Substance: ZOLEDRONIC ACID
     Indication: Metastases to thorax
  3. PALBOCICLIB [Suspect]
     Active Substance: PALBOCICLIB
     Indication: Invasive lobular breast carcinoma
     Dosage: UNK
     Route: 065
  4. PALBOCICLIB [Suspect]
     Active Substance: PALBOCICLIB
     Indication: Metastases to thorax
  5. FULVESTRANT [Suspect]
     Active Substance: FULVESTRANT
     Indication: Invasive lobular breast carcinoma
     Dosage: UNK
     Route: 065
  6. FULVESTRANT [Suspect]
     Active Substance: FULVESTRANT
     Indication: Metastases to thorax

REACTIONS (1)
  - Erosive oesophagitis [Recovering/Resolving]
